FAERS Safety Report 18297359 (Version 2)
Quarter: 2021Q3

REPORT INFORMATION
  Report Type: Spontaneous
  Country: JP (occurrence: JP)
  Receive Date: 20200923
  Receipt Date: 20210721
  Transmission Date: 20211014
  Serious: Yes (Hospitalization, Other)
  Sender: FDA-Public Use
  Company Number: JP-TAKEDA-2020TJP019837

PATIENT
  Age: 46 Year
  Sex: Female
  Weight: 69 kg

DRUGS (3)
  1. ENTYVIO [Suspect]
     Active Substance: VEDOLIZUMAB
     Indication: CROHN^S DISEASE
     Dosage: 300 MILLIGRAM
     Route: 042
     Dates: start: 20190727
  2. PENTASA [Concomitant]
     Active Substance: MESALAMINE
     Indication: CROHN^S DISEASE
     Dosage: 300 MILLIGRAM, TID
     Route: 048
  3. ELENTAL [Concomitant]
     Active Substance: AMINO ACIDS\CARBOHYDRATES\MINERALS\SOYBEAN OIL\VITAMINS
     Indication: CROHN^S DISEASE
     Dosage: UNK UNK, BID
     Route: 048

REACTIONS (1)
  - Intestinal anastomosis complication [Recovered/Resolved]

NARRATIVE: CASE EVENT DATE: 20200728
